FAERS Safety Report 6769542-8 (Version None)
Quarter: 2010Q2

REPORT INFORMATION
  Report Type: 
  Country: None (occurrence: None)
  Receive Date: 20100615
  Receipt Date: 20100602
  Transmission Date: 20101027
  Serious: Yes (Hospitalization)
  Sender: FDA-Public Use
  Company Number: PHHY2010US36248

PATIENT
  Sex: Male
  Weight: 51.36 kg

DRUGS (5)
  1. EXJADE [Suspect]
     Indication: IRON OVERLOAD
     Dosage: 375 MG, TID
     Route: 048
     Dates: start: 20100316
  2. TYLENOL (CAPLET) [Concomitant]
     Dosage: UNK
  3. VITAMIN B-12 [Concomitant]
     Dosage: UNK
  4. FOLIC ACID [Concomitant]
     Dosage: UNK
  5. TRANSFUSIONS [Concomitant]
     Dosage: UNK

REACTIONS (2)
  - RASH [None]
  - SPLENECTOMY [None]
